FAERS Safety Report 23258808 (Version 1)
Quarter: 2023Q4

REPORT INFORMATION
  Report Type: Spontaneous
  Country: US (occurrence: None)
  Receive Date: 20231203
  Receipt Date: 20231203
  Transmission Date: 20240110
  Serious: Yes (Disabling)
  Sender: FDA-Public Use
  Company Number: None

PATIENT
  Age: 83 Year
  Sex: Female
  Weight: 54 kg

DRUGS (11)
  1. SERTRALINE [Suspect]
     Active Substance: SERTRALINE HYDROCHLORIDE
     Indication: Depression
     Dosage: OTHER QUANTITY : 2 TABLET(S);?FREQUENCY : AT BEDTIME;?
     Route: 048
     Dates: start: 20230415, end: 20230930
  2. Synthroid Prednisone [Concomitant]
  3. ROSUVASTATIN [Concomitant]
     Active Substance: ROSUVASTATIN
  4. NURTEC ODT [Concomitant]
     Active Substance: RIMEGEPANT SULFATE
  5. OMEPRAZOLE [Concomitant]
     Active Substance: OMEPRAZOLE
  6. MIDODRINE [Concomitant]
     Active Substance: MIDODRINE
  7. Fludrocortizone [Concomitant]
  8. ASPIRIN [Concomitant]
     Active Substance: ASPIRIN
  9. Anoro Folic acid [Concomitant]
  10. POTASSIUM CHLORIDE [Concomitant]
     Active Substance: POTASSIUM CHLORIDE
  11. VITAMIN D3 [Concomitant]
     Active Substance: CHOLECALCIFEROL

REACTIONS (8)
  - Fall [None]
  - Head injury [None]
  - General physical health deterioration [None]
  - Asthenia [None]
  - Balance disorder [None]
  - Gait disturbance [None]
  - Dysstasia [None]
  - Salivary hypersecretion [None]

NARRATIVE: CASE EVENT DATE: 20230910
